FAERS Safety Report 20722636 (Version 2)
Quarter: 2022Q2

REPORT INFORMATION
  Report Type: Spontaneous
  Country: GB (occurrence: GB)
  Receive Date: 20220419
  Receipt Date: 20220603
  Transmission Date: 20220721
  Serious: Yes (Other)
  Sender: FDA-Public Use
  Company Number: None

PATIENT
  Age: 54 Year
  Sex: Male
  Weight: 68 kg

DRUGS (8)
  1. LOSARTAN POTASSIUM [Suspect]
     Active Substance: LOSARTAN POTASSIUM
     Dosage: 25 MILLIGRAM, QD
     Dates: start: 20220326
  2. ALOGLIPTIN [Concomitant]
     Active Substance: ALOGLIPTIN
     Dosage: TAKE ONE DAILY
     Dates: start: 20201130
  3. ATORVASTATIN [Concomitant]
     Active Substance: ATORVASTATIN
     Dosage: TAKE ONE TABLET DAILY
     Dates: start: 20211221
  4. DAPAGLIFLOZIN [Concomitant]
     Active Substance: DAPAGLIFLOZIN
     Dosage: TAKE ONE DAILY
     Dates: start: 20211221
  5. DOXYCYCLINE [Concomitant]
     Active Substance: DOXYCYCLINE
     Dosage: TAKE TWO CAPSULES IMMEDIATELY THEN ONE CAPSULE
     Dates: start: 20220326, end: 20220331
  6. METFORMIN [Concomitant]
     Active Substance: METFORMIN HYDROCHLORIDE
     Dosage: 2 DOSAGE FORM, QD
     Dates: start: 20201130
  7. ACETAMINOPHEN [Concomitant]
     Active Substance: ACETAMINOPHEN
     Dosage: TAKE 1-2 WHEN REQUIRED UPTO A MAX OF FOUR TIMES
     Dates: start: 20201130
  8. RAMIPRIL [Concomitant]
     Active Substance: RAMIPRIL
     Dosage: 1 DOSAGE FORM, QD
     Dates: start: 20201130, end: 20220326

REACTIONS (1)
  - Pruritus [Unknown]
